FAERS Safety Report 9886010 (Version 1)
Quarter: 2013Q4

REPORT INFORMATION
  Report Type: Spontaneous
  Country: US (occurrence: None)
  Receive Date: 20131223
  Receipt Date: 20131223
  Transmission Date: 20140711
  Serious: Yes (Other)
  Sender: FDA-Public Use
  Company Number: 217664LEO

PATIENT
  Age: 57 Year
  Sex: Male

DRUGS (8)
  1. PICATO (0.015 %, GEL) [Suspect]
     Route: 061
     Dates: start: 20120512, end: 20120514
  2. PROTONIX (PANTOPRAZOLE) [Concomitant]
  3. CALCIUM (CALCIUM) [Concomitant]
  4. ASA (ACETYLSALICYLIC ACID) [Concomitant]
  5. POTASSIUM (POTASSIUM) [Concomitant]
  6. ACYCLOVIR (ACICLOVIR) (ACICLOVIR) [Concomitant]
  7. LASIX (FUROSEMIDE) [Concomitant]
  8. CRESTOR (ROSUVASTATIN) [Concomitant]

REACTIONS (2)
  - Headache [None]
  - Application site reaction [None]
